FAERS Safety Report 17086957 (Version 2)
Quarter: 2019Q4

REPORT INFORMATION
  Report Type: Spontaneous
  Country: US (occurrence: US)
  Receive Date: 20191128
  Receipt Date: 20191129
  Transmission Date: 20200122
  Serious: Yes (Hospitalization, Other)
  Sender: FDA-Public Use
  Company Number: US-TEVA-2019-US-1141973

PATIENT
  Sex: Female

DRUGS (2)
  1. ADRUCIL [Suspect]
     Active Substance: FLUOROURACIL
     Dosage: THREE DOSES
     Route: 065
     Dates: start: 2017
  2. DILAUDID [Suspect]
     Active Substance: HYDROMORPHONE HYDROCHLORIDE
     Dosage: TWO DOSES
     Route: 065

REACTIONS (6)
  - Necrosis [Unknown]
  - Diarrhoea [Unknown]
  - Condition aggravated [Unknown]
  - Malaise [Unknown]
  - Near death experience [Unknown]
  - Corneal transplant [Unknown]

NARRATIVE: CASE EVENT DATE: 2017
